FAERS Safety Report 8502500-1 (Version None)
Quarter: 2012Q3

REPORT INFORMATION
  Report Type: 
  Country: None (occurrence: None)
  Receive Date: 20120711
  Receipt Date: 20120709
  Transmission Date: 20120928
  Serious: Yes (Hospitalization)
  Sender: FDA-Public Use
  Company Number: US-ROXANE LABORATORIES, INC.-2012-RO-01528RO

PATIENT
  Sex: Female
  Weight: 95 kg

DRUGS (12)
  1. BISACODYL [Suspect]
     Indication: IRRITABLE BOWEL SYNDROME
     Dosage: 5 MG
  2. METHADONE HCL [Suspect]
     Indication: BACK DISORDER
     Dosage: 30 MG
  3. LISINOPRIL [Suspect]
     Indication: HYPERTENSION
     Dosage: 10 MG
  4. LYRICA [Suspect]
     Indication: FIBROMYALGIA
     Dosage: 300 MG
     Route: 048
     Dates: start: 20110101
  5. ARIPIPRAZOLE [Suspect]
     Indication: DEPRESSION
     Route: 048
  6. ALLEGRA [Suspect]
     Indication: HYPERSENSITIVITY
  7. ATORVASTATIN [Suspect]
     Indication: BLOOD CHOLESTEROL INCREASED
     Dosage: 80 MG
  8. VITAMIN D [Suspect]
     Indication: VITAMIN D DEFICIENCY
  9. TAMSULOSIN HCL [Suspect]
     Indication: BLADDER DISORDER
     Dosage: 0.4 MG
     Route: 048
  10. OMEPRAZOLE [Suspect]
     Indication: GASTROOESOPHAGEAL REFLUX DISEASE
     Dosage: 20.6 MG
  11. OSTEOBI FLEX [Suspect]
     Indication: BACK PAIN
  12. ASPIRIN [Suspect]
     Indication: HYPERTENSION
     Dosage: 81 MG

REACTIONS (1)
  - DRUG INTERACTION [None]
